FAERS Safety Report 10615764 (Version 2)
Quarter: 2014Q4

REPORT INFORMATION
  Report Type: Report from Study
  Country: GB (occurrence: GB)
  Receive Date: 20141201
  Receipt Date: 20141216
  Transmission Date: 20150529
  Serious: Yes (Other)
  Sender: FDA-Public Use
  Company Number: GB-JNJFOC-20141114025

PATIENT
  Age: 82 Year
  Sex: Female

DRUGS (1)
  1. IBUTINIB [Suspect]
     Active Substance: IBRUTINIB
     Indication: MANTLE CELL LYMPHOMA
     Route: 048

REACTIONS (1)
  - Lymphocytosis [Unknown]

NARRATIVE: CASE EVENT DATE: 20141023
